APPROVED DRUG PRODUCT: BUTALBITAL, ACETAMINOPHEN AND CAFFEINE
Active Ingredient: ACETAMINOPHEN; BUTALBITAL; CAFFEINE
Strength: 500MG;50MG;40MG
Dosage Form/Route: TABLET;ORAL
Application: A040513 | Product #001
Applicant: VINTAGE PHARMACEUTICALS INC
Approved: Aug 25, 2003 | RLD: No | RS: No | Type: DISCN